FAERS Safety Report 9813530 (Version 2)
Quarter: 2014Q1

REPORT INFORMATION
  Report Type: Spontaneous
  Country: US (occurrence: US)
  Receive Date: 20140113
  Receipt Date: 20140128
  Transmission Date: 20141002
  Serious: No
  Sender: FDA-Public Use
  Company Number: US-PFIZER INC-2014005789

PATIENT
  Sex: Male

DRUGS (2)
  1. TIKOSYN [Suspect]
     Dosage: 125 UG, 2X/DAY
  2. TIKOSYN [Suspect]
     Dosage: 250 UG, 2X/DAY

REACTIONS (2)
  - Palpitations [Unknown]
  - Drug effect incomplete [Unknown]
